FAERS Safety Report 8048321-8 (Version None)
Quarter: 2012Q1

REPORT INFORMATION
  Report Type: 
  Country: None (occurrence: None)
  Receive Date: 20120117
  Receipt Date: 20120111
  Transmission Date: 20120608
  Serious: No
  Sender: FDA-Public Use
  Company Number: US-PFIZER INC-2011099722

PATIENT
  Sex: Female

DRUGS (4)
  1. ALSUMA [Suspect]
     Indication: MIGRAINE
  2. NARATRIPTAN [Suspect]
     Indication: MIGRAINE
     Dosage: UNK
  3. RELPAX [Suspect]
     Indication: MIGRAINE
     Dosage: UNK
  4. SUMATRIPTAN SUCCINATE [Suspect]
     Indication: MIGRAINE
     Dosage: UNK

REACTIONS (1)
  - DRUG INEFFECTIVE [None]
